FAERS Safety Report 8619090-5 (Version None)
Quarter: 2012Q3

REPORT INFORMATION
  Report Type: 
  Country: None (occurrence: None)
  Receive Date: 20120824
  Receipt Date: 20120821
  Transmission Date: 20120928
  Serious: Yes (Disabling)
  Sender: FDA-Public Use
  Company Number: PHHY2012JP063800

PATIENT
  Age: 65 Year
  Sex: Male

DRUGS (1)
  1. VALSARTAN/HYDROCHLOROTHIAZIDE [Suspect]
     Indication: BLOOD PRESSURE
     Dosage: 1 DF, DAILY
     Route: 048
     Dates: start: 20111107

REACTIONS (2)
  - TINNITUS [None]
  - SUDDEN HEARING LOSS [None]
